FAERS Safety Report 12823718 (Version 1)
Quarter: 2016Q4

REPORT INFORMATION
  Report Type: Spontaneous
  Country: US (occurrence: US)
  Receive Date: 20161007
  Receipt Date: 20161007
  Transmission Date: 20170207
  Serious: Yes (Hospitalization)
  Sender: FDA-Public Use
  Company Number: US-INDIVIOR LIMITED-INDV-088860-2016

PATIENT
  Age: 25 Year
  Sex: Female

DRUGS (1)
  1. SUBOXONE [Suspect]
     Active Substance: BUPRENORPHINE HYDROCHLORIDE\NALOXONE HYDROCHLORIDE
     Indication: DRUG DEPENDENCE
     Dosage: UNK, TAPERING DOWN
     Route: 065

REACTIONS (5)
  - Limb injury [Unknown]
  - Injury [Unknown]
  - Impaired healing [Recovered/Resolved]
  - Intentional underdose [Unknown]
  - Road traffic accident [Recovered/Resolved]
